FAERS Safety Report 17358431 (Version 1)
Quarter: 2020Q1

REPORT INFORMATION
  Report Type: Spontaneous
  Country: JP (occurrence: JP)
  Receive Date: 20200201
  Receipt Date: 20200201
  Transmission Date: 20200409
  Serious: Yes (Hospitalization)
  Sender: FDA-Public Use
  Company Number: JP-BAYER-2019-235031

PATIENT
  Age: 30 Year
  Sex: Female

DRUGS (3)
  1. YAZ [Suspect]
     Active Substance: DROSPIRENONE\ETHINYL ESTRADIOL
     Dosage: UNK
     Route: 048
     Dates: end: 20191220
  2. YAZ [Suspect]
     Active Substance: DROSPIRENONE\ETHINYL ESTRADIOL
     Dosage: UNK
     Route: 048
  3. SHINLUCK [Concomitant]
     Active Substance: SODIUM PICOSULFATE

REACTIONS (4)
  - Intervertebral disc protrusion [None]
  - Intervertebral disc protrusion [Not Recovered/Not Resolved]
  - Product monitoring error [None]
  - Contraindicated product administered [None]
